FAERS Safety Report 4984184-2 (Version None)
Quarter: 2006Q2

REPORT INFORMATION
  Report Type: 
  Country: None (occurrence: None)
  Receive Date: 20060420
  Receipt Date: 20060407
  Transmission Date: 20061013
  Serious: Yes (Life-Threatening)
  Sender: FDA-Public Use
  Company Number: 2006049805

PATIENT
  Age: 76 Year
  Sex: Female
  Weight: 65 kg

DRUGS (16)
  1. CLINDAMYCIN HCL [Suspect]
     Indication: INFECTION
     Dosage: DAILY, INTRAVENOUS
     Route: 042
     Dates: start: 20050424, end: 20050503
  2. CIPROFLOXACIN [Suspect]
     Indication: INFECTION
     Dosage: 250 MG (DAILY), ORAL
     Route: 048
     Dates: start: 20050425, end: 20050503
  3. RED BLOOD CELLS [Concomitant]
  4. FURO (FUROSEMIDE) [Concomitant]
  5. METAMIZOLE [Concomitant]
  6. AMPICILLIN AND SULBACTAM [Concomitant]
  7. LEVOTHYROXINE SODIUM [Concomitant]
  8. ENOXAPARIN SODIUM [Concomitant]
  9. PANTOZOL (PANTOPRAZOLE SODIUM) [Concomitant]
  10. IBUPROFEN [Concomitant]
  11. NEXIUM [Concomitant]
  12. HEPARIN [Concomitant]
  13. METOPROLOL SUCCINATE [Concomitant]
  14. METOPROLOL TARTRATE [Concomitant]
  15. LEVOFLOXACIN [Concomitant]
  16. PRIMAXIN [Concomitant]

REACTIONS (6)
  - HAEMOGLOBIN DECREASED [None]
  - NOSOCOMIAL INFECTION [None]
  - RED BLOOD CELL ABNORMALITY [None]
  - RENAL FAILURE ACUTE [None]
  - THROMBOTIC THROMBOCYTOPENIC PURPURA [None]
  - URINARY TRACT INFECTION PSEUDOMONAL [None]
